FAERS Safety Report 6346869-5 (Version None)
Quarter: 2009Q3

REPORT INFORMATION
  Report Type: 
  Country: None (occurrence: None)
  Receive Date: 20090909
  Receipt Date: 20090909
  Transmission Date: 20100115
  Serious: Yes (Hospitalization)
  Sender: FDA-Public Use
  Company Number: None

PATIENT
  Sex: Male
  Weight: 102.9 kg

DRUGS (2)
  1. METHOTREXATE [Suspect]
     Dosage: 2185 MG
  2. VINCRISTINE SULFATE [Suspect]
     Dosage: 10 MG

REACTIONS (4)
  - FEBRILE NEUTROPENIA [None]
  - ORAL PAIN [None]
  - PANCYTOPENIA [None]
  - STOMATITIS [None]
